FAERS Safety Report 23359737 (Version 1)
Quarter: 2024Q1

REPORT INFORMATION
  Report Type: Spontaneous
  Country: GB (occurrence: GB)
  Receive Date: 20240103
  Receipt Date: 20240103
  Transmission Date: 20240410
  Serious: Yes (Hospitalization, Other)
  Sender: FDA-Public Use
  Company Number: GB-CPL-003913

PATIENT
  Sex: Male
  Weight: 2.02 kg

DRUGS (1)
  1. FOLIC ACID [Suspect]
     Active Substance: FOLIC ACID

REACTIONS (2)
  - Respiratory distress [Unknown]
  - Foetal exposure during pregnancy [Unknown]
